FAERS Safety Report 11166303 (Version 1)
Quarter: 2015Q2

REPORT INFORMATION
  Report Type: Spontaneous
  Country: US (occurrence: US)
  Receive Date: 20150605
  Receipt Date: 20150605
  Transmission Date: 20150821
  Serious: No
  Sender: FDA-Public Use
  Company Number: US-ASTRAZENECA-2015SE52269

PATIENT
  Sex: Female
  Weight: 77.1 kg

DRUGS (3)
  1. LANTUS INSULIN SOLOSTAR [Concomitant]
     Indication: DIABETES MELLITUS
     Route: 058
  2. NOVOLOG [Concomitant]
     Active Substance: INSULIN ASPART
     Indication: DIABETES MELLITUS
     Dosage: THREE TIMES A DAY
     Route: 058
  3. BYDUREON [Suspect]
     Active Substance: EXENATIDE
     Indication: DIABETES MELLITUS
     Route: 058
     Dates: start: 20150210

REACTIONS (4)
  - Drug dose omission [Unknown]
  - Injection site nodule [Unknown]
  - Injection site mass [Not Recovered/Not Resolved]
  - Underdose [Unknown]
